FAERS Safety Report 6297563-0 (Version None)
Quarter: 2009Q3

REPORT INFORMATION
  Report Type: 
  Country: None (occurrence: None)
  Receive Date: 20090805
  Receipt Date: 20090804
  Transmission Date: 20100115
  Serious: Yes (Disabling)
  Sender: FDA-Public Use
  Company Number: US-BAYER-200928895NA

PATIENT

DRUGS (1)
  1. CIPRO [Suspect]
     Indication: INFECTION

REACTIONS (3)
  - GAIT DISTURBANCE [None]
  - TENDON DISORDER [None]
  - TENDON PAIN [None]
